FAERS Safety Report 5431015-2 (Version None)
Quarter: 2007Q3

REPORT INFORMATION
  Report Type: 
  Country: None (occurrence: None)
  Receive Date: 20070830
  Receipt Date: 20070821
  Transmission Date: 20080115
  Serious: Yes (Hospitalization)
  Sender: FDA-Public Use
  Company Number: PHRM2007FR02068

PATIENT
  Age: 13 Year
  Sex: Male

DRUGS (2)
  1. RITALIN [Suspect]
     Indication: INTENTIONAL OVERDOSE
     Dosage: 20 MG, QD
     Route: 048
     Dates: end: 20070816
  2. RITALIN [Suspect]
     Dosage: 140 MG, ONCE/SINGLE
     Route: 048
     Dates: start: 20070817, end: 20070817

REACTIONS (3)
  - INTENTIONAL OVERDOSE [None]
  - NEUTROPENIA [None]
  - SUICIDE ATTEMPT [None]
